FAERS Safety Report 8540448-7 (Version None)
Quarter: 2012Q3

REPORT INFORMATION
  Report Type: 
  Country: None (occurrence: None)
  Receive Date: 20120726
  Receipt Date: 20110802
  Transmission Date: 20120928
  Serious: No
  Sender: FDA-Public Use
  Company Number: US-ASTRAZENECA-2011SE42393

PATIENT
  Age: 35 Year
  Sex: Female
  Weight: 83.9 kg

DRUGS (5)
  1. SEROQUEL [Suspect]
     Indication: BIPOLAR DISORDER
     Route: 048
  2. DEPAKOTE [Concomitant]
  3. CRESTOR [Concomitant]
  4. SYNTHROID [Concomitant]
  5. PROZAC [Concomitant]

REACTIONS (5)
  - NAUSEA [None]
  - INSOMNIA [None]
  - DRUG WITHDRAWAL SYNDROME [None]
  - VOMITING [None]
  - DRUG DOSE OMISSION [None]
